FAERS Safety Report 25597526 (Version 1)
Quarter: 2025Q3

REPORT INFORMATION
  Report Type: Spontaneous
  Country: US (occurrence: US)
  Receive Date: 20250723
  Receipt Date: 20250723
  Transmission Date: 20251020
  Serious: No
  Sender: ASTELLAS
  Company Number: US-ASTELLAS-2025-AER-034045

PATIENT
  Sex: Female

DRUGS (2)
  1. VEOZAH [Suspect]
     Active Substance: FEZOLINETANT
     Indication: Hot flush
     Route: 065
  2. SLYND [Concomitant]
     Active Substance: DROSPIRENONE
     Indication: Amenorrhoea
     Route: 065

REACTIONS (2)
  - Vaginal haemorrhage [Unknown]
  - Blood follicle stimulating hormone decreased [Unknown]
